FAERS Safety Report 6413951-3 (Version None)
Quarter: 2009Q4

REPORT INFORMATION
  Report Type: 
  Country: None (occurrence: None)
  Receive Date: 20091026
  Receipt Date: 20091016
  Transmission Date: 20100525
  Serious: Yes (Hospitalization)
  Sender: FDA-Public Use
  Company Number: US-JNJFOC-20080102528

PATIENT
  Age: 29 Year
  Sex: Male

DRUGS (7)
  1. HALOPERIDOL DECANOATE [Suspect]
     Route: 030
  2. HALOPERIDOL DECANOATE [Suspect]
     Route: 030
  3. HALOPERIDOL DECANOATE [Suspect]
     Route: 030
  4. HALOPERIDOL DECANOATE [Suspect]
     Route: 030
  5. HALOPERIDOL DECANOATE [Suspect]
     Indication: BIPOLAR I DISORDER
     Route: 030
  6. HALOPERIDOL [Suspect]
     Route: 048
  7. HALOPERIDOL [Suspect]
     Indication: BIPOLAR I DISORDER
     Route: 048

REACTIONS (2)
  - HOSPITALISATION [None]
  - HYPERPROLACTINAEMIA [None]
